FAERS Safety Report 10081727 (Version 2)
Quarter: 2014Q2

REPORT INFORMATION
  Report Type: Spontaneous
  Country: US (occurrence: US)
  Receive Date: 20140416
  Receipt Date: 20140421
  Transmission Date: 20141212
  Serious: Yes (Hospitalization)
  Sender: FDA-Public Use
  Company Number: US-BAXTER-2014BAX018125

PATIENT
  Sex: Female
  Weight: 72 kg

DRUGS (4)
  1. DIANEAL LOW CALCIUM [Suspect]
     Indication: RENAL FAILURE CHRONIC
     Route: 033
     Dates: start: 2013
  2. DIANEAL LOW CALCIUM [Suspect]
     Route: 033
     Dates: start: 201404
  3. DIANEAL LOW CALCIUM [Suspect]
     Indication: RENAL FAILURE CHRONIC
     Route: 033
     Dates: start: 2013
  4. DIANEAL LOW CALCIUM [Suspect]
     Route: 033
     Dates: start: 201404

REACTIONS (2)
  - Colitis [Recovered/Resolved]
  - Constipation [Unknown]
